FAERS Safety Report 13898844 (Version 1)
Quarter: 2017Q3

REPORT INFORMATION
  Report Type: Spontaneous
  Country: CA (occurrence: CA)
  Receive Date: 20170824
  Receipt Date: 20170824
  Transmission Date: 20171127
  Serious: Yes (Hospitalization)
  Sender: FDA-Public Use
  Company Number: CA-APOTEX-2017AP016908

PATIENT
  Age: 67 Year
  Sex: Female

DRUGS (11)
  1. FENTANYL. [Concomitant]
     Active Substance: FENTANYL
     Indication: ANALGESIC THERAPY
     Dosage: 200 MG OVER 24 HOURS
     Route: 058
  2. OXYCODONE                          /00045603/ [Concomitant]
     Active Substance: OXYCODONE
     Dosage: 5 MG, NEEDED
     Route: 048
  3. FENTANYL. [Concomitant]
     Active Substance: FENTANYL
     Dosage: 1800 MG OVER 24 HOURS
     Route: 058
  4. MIDAZOLAM [Concomitant]
     Active Substance: MIDAZOLAM HYDROCHLORIDE
     Indication: BREAKTHROUGH PAIN
     Dosage: 20 MG, UNK
     Route: 065
  5. MIDAZOLAM [Concomitant]
     Active Substance: MIDAZOLAM HYDROCHLORIDE
     Indication: AGITATION
  6. HALOPERIDOL. [Concomitant]
     Active Substance: HALOPERIDOL
     Indication: DELIRIUM
     Dosage: 1 MG OVER 24 HOURS
     Route: 065
  7. SUFENTANIL [Concomitant]
     Active Substance: SUFENTANIL
     Indication: BREAKTHROUGH PAIN
     Dosage: UNK
     Route: 065
  8. GABAPENTIN. [Suspect]
     Active Substance: GABAPENTIN
     Indication: PRURITUS
  9. SUFENTANIL [Concomitant]
     Active Substance: SUFENTANIL
     Indication: AGITATION
  10. GABAPENTIN. [Suspect]
     Active Substance: GABAPENTIN
     Indication: PAIN
     Dosage: 100 MG, AT NIGHT
     Route: 048
  11. OXYCODONE                          /00045603/ [Concomitant]
     Active Substance: OXYCODONE
     Indication: PAIN
     Dosage: 40 MG, BID
     Route: 048

REACTIONS (1)
  - Hepatic function abnormal [Unknown]
